FAERS Safety Report 8950480 (Version 1)
Quarter: 2012Q4

REPORT INFORMATION
  Report Type: Report from Study
  Country: US (occurrence: US)
  Receive Date: 20121206
  Receipt Date: 20121206
  Transmission Date: 20130627
  Serious: Yes (Other)
  Sender: FDA-Public Use
  Company Number: US-ABBOTT-12P-163-1017242-00

PATIENT
  Age: 45 Year
  Sex: Female

DRUGS (1)
  1. HUMIRA [Suspect]
     Indication: CROHN^S DISEASE
     Dates: start: 201007

REACTIONS (8)
  - Uterine leiomyoma [Unknown]
  - Menorrhagia [Unknown]
  - Abdominal pain lower [Unknown]
  - Sinus headache [Unknown]
  - Ear discomfort [Unknown]
  - Pain [Unknown]
  - Nasal congestion [Unknown]
  - Sinusitis [Unknown]
